FAERS Safety Report 6222932-4 (Version None)
Quarter: 2009Q2

REPORT INFORMATION
  Report Type: 
  Country: None (occurrence: None)
  Receive Date: 20090611
  Receipt Date: 20090605
  Transmission Date: 20091009
  Serious: Yes (Death)
  Sender: FDA-Public Use
  Company Number: AU-AVENTIS-200915801GDDC

PATIENT
  Age: 77 Year
  Sex: Female

DRUGS (5)
  1. ARAVA [Suspect]
     Indication: RHEUMATOID ARTHRITIS
     Dates: start: 20050731
  2. ACTONEL [Suspect]
     Indication: OSTEOPOROSIS
     Dates: start: 20050515
  3. METHOTREXATE [Concomitant]
     Dosage: DOSE: UNK
  4. PREDNISONE [Concomitant]
     Dosage: DOSE: UNK
  5. PARACETAMOL [Concomitant]
     Dosage: DOSE: UNK

REACTIONS (1)
  - CEREBROVASCULAR ACCIDENT [None]
